FAERS Safety Report 15106109 (Version 2)
Quarter: 2018Q3

REPORT INFORMATION
  Report Type: Spontaneous
  Country: JP (occurrence: JP)
  Receive Date: 20180704
  Receipt Date: 20180730
  Transmission Date: 20181010
  Serious: Yes (Death, Other)
  Sender: FDA-Public Use
  Company Number: JP-BRISTOL-MYERS SQUIBB COMPANY-BMS-2018-061082

PATIENT
  Age: 79 Year
  Sex: Male
  Weight: 57 kg

DRUGS (11)
  1. ELIQUIS [Suspect]
     Active Substance: APIXABAN
     Indication: VENA CAVA THROMBOSIS
     Route: 065
  2. URIEF [Concomitant]
     Active Substance: SILODOSIN
     Indication: URINARY RETENTION
     Dosage: 4 MG, QD
     Route: 048
     Dates: start: 20180612
  3. LANSOPRAZOLE. [Concomitant]
     Active Substance: LANSOPRAZOLE
     Indication: ACUTE CORONARY SYNDROME
     Dosage: 15 MG, QD
     Route: 048
     Dates: start: 20180416
  4. ELIQUIS [Suspect]
     Active Substance: APIXABAN
     Indication: DEEP VEIN THROMBOSIS
     Dosage: 10 MG, BID
     Route: 048
     Dates: start: 20180425, end: 20180501
  5. ELIQUIS [Suspect]
     Active Substance: APIXABAN
     Indication: PULMONARY EMBOLISM
     Dosage: 5 MG, BID
     Route: 048
     Dates: start: 20180502
  6. LYRICA [Concomitant]
     Active Substance: PREGABALIN
     Indication: VENA CAVA THROMBOSIS
     Dosage: 50 MG, BID
     Route: 048
     Dates: start: 20180530
  7. BAYASPIRIN [Suspect]
     Active Substance: ASPIRIN
     Indication: ACUTE CORONARY SYNDROME
     Dosage: 100 MG, QD
     Route: 048
     Dates: start: 20180416
  8. MAGMITT [Concomitant]
     Active Substance: MAGNESIUM OXIDE
     Indication: CONSTIPATION
     Dosage: 330 MG, TID
     Route: 048
     Dates: start: 20180426
  9. SPIRONOLACTONE. [Concomitant]
     Active Substance: SPIRONOLACTONE
     Indication: ACUTE CORONARY SYNDROME
     Dosage: 75 MG, QD
     Route: 048
     Dates: start: 20180417
  10. CARVEDILOL. [Concomitant]
     Active Substance: CARVEDILOL
     Indication: ACUTE CORONARY SYNDROME
     Dosage: 2.5 MG, QD
     Route: 048
     Dates: start: 20180514
  11. DAIKENCHUTO [Concomitant]
     Active Substance: HERBALS
     Indication: CONSTIPATION
     Dosage: 25 MG, TID
     Route: 048
     Dates: start: 20180426

REACTIONS (1)
  - Putamen haemorrhage [Fatal]

NARRATIVE: CASE EVENT DATE: 20180626
